FAERS Safety Report 13717054 (Version 1)
Quarter: 2017Q3

REPORT INFORMATION
  Report Type: Spontaneous
  Country: US (occurrence: US)
  Receive Date: 20170704
  Receipt Date: 20170704
  Transmission Date: 20171127
  Serious: No
  Sender: FDA-Public Use
  Company Number: None

PATIENT
  Age: 3 Year
  Sex: Female
  Weight: 16.2 kg

DRUGS (1)
  1. MIRALAX [Suspect]
     Active Substance: POLYETHYLENE GLYCOL 3350
     Indication: CONSTIPATION
     Dosage: ?          OTHER STRENGTH:GM;QUANTITY:0.25 CAPSULE(S);?
     Route: 048
     Dates: start: 20141123, end: 20170617

REACTIONS (1)
  - Nystagmus [None]

NARRATIVE: CASE EVENT DATE: 20160413
